FAERS Safety Report 7200487-5 (Version None)
Quarter: 2010Q4

REPORT INFORMATION
  Report Type: 
  Country: None (occurrence: None)
  Receive Date: 20101228
  Receipt Date: 20101221
  Transmission Date: 20110411
  Serious: Yes (Other)
  Sender: FDA-Public Use
  Company Number: GB-PFIZER INC-2010177129

PATIENT
  Age: 67 Year
  Sex: Female

DRUGS (1)
  1. AROMASIN [Suspect]
     Indication: BREAST CANCER
     Dosage: UNK

REACTIONS (5)
  - ALOPECIA [None]
  - ARTHRALGIA [None]
  - INSOMNIA [None]
  - OROPHARYNGEAL PAIN [None]
  - PHARYNGEAL MASS [None]
